FAERS Safety Report 6230842-1 (Version None)
Quarter: 2009Q2

REPORT INFORMATION
  Report Type: 
  Country: None (occurrence: None)
  Receive Date: 20090616
  Receipt Date: 20090616
  Transmission Date: 20091009
  Serious: Yes (Other)
  Sender: FDA-Public Use
  Company Number: US-PFIZER INC-2009180462

PATIENT
  Sex: Male

DRUGS (3)
  1. TRIAZOLAM [Suspect]
     Dosage: 0.25 MG UNK
  2. TRAMADOL HCL [Suspect]
     Dosage: 300 MG DAILY
  3. AMITRIPTYLINE [Suspect]

REACTIONS (3)
  - DEPRESSED MOOD [None]
  - DRUG INEFFECTIVE [None]
  - PAIN [None]
